FAERS Safety Report 4749487-5 (Version None)
Quarter: 2005Q3

REPORT INFORMATION
  Report Type: 
  Country: None (occurrence: None)
  Receive Date: 20050822
  Receipt Date: 20050809
  Transmission Date: 20060218
  Serious: Yes (Hospitalization)
  Sender: FDA-Public Use
  Company Number: 2005AC01200

PATIENT
  Age: 56 Year
  Sex: Male

DRUGS (11)
  1. ROSUVASTATIN [Suspect]
     Route: 048
  2. WARFARIN SODIUM [Suspect]
     Route: 048
  3. AMIODARONE HCL [Suspect]
  4. DICLOFENAC [Suspect]
     Indication: BACK PAIN
  5. RAMIPRIL [Concomitant]
  6. LEVOTHYROXINE SODIUM [Concomitant]
  7. ESCITALOPRAM OXALATE [Concomitant]
  8. CARVEDILOL [Concomitant]
  9. DIGITOXIN TAB [Concomitant]
  10. TAMESULOSIN [Concomitant]
  11. ZOLPIDEM [Concomitant]

REACTIONS (13)
  - BACK PAIN [None]
  - BALANCE DISORDER [None]
  - BLOOD CREATINE PHOSPHOKINASE INCREASED [None]
  - COAGULOPATHY [None]
  - COORDINATION ABNORMAL [None]
  - DIZZINESS [None]
  - DRUG EFFECT INCREASED [None]
  - INTERNATIONAL NORMALISED RATIO INCREASED [None]
  - KYPHOSIS [None]
  - MYALGIA [None]
  - NECK PAIN [None]
  - OSTEOCHONDROSIS [None]
  - POLYNEUROPATHY [None]
